FAERS Safety Report 17568405 (Version 1)
Quarter: 2020Q1

REPORT INFORMATION
  Report Type: Spontaneous
  Country: US (occurrence: US)
  Receive Date: 20200320
  Receipt Date: 20200320
  Transmission Date: 20200409
  Serious: Yes (Other)
  Sender: FDA-Public Use
  Company Number: US-NAPPMUNDI-USA-2020-0150462

PATIENT

DRUGS (1)
  1. OXYCONTIN [Suspect]
     Active Substance: OXYCODONE HYDROCHLORIDE
     Indication: PAIN
     Dosage: UNK
     Route: 048
     Dates: start: 200002

REACTIONS (5)
  - Drug abuse [Recovered/Resolved]
  - Impaired work ability [Unknown]
  - Hepatitis C [Not Recovered/Not Resolved]
  - Drug dependence [Recovered/Resolved]
  - Impaired quality of life [Unknown]
